FAERS Safety Report 8595881-4 (Version None)
Quarter: 2012Q3

REPORT INFORMATION
  Report Type: 
  Country: None (occurrence: None)
  Receive Date: 20120815
  Receipt Date: 19890202
  Transmission Date: 20120928
  Serious: Yes (Hospitalization)
  Sender: FDA-Public Use
  Company Number: US-ROCHE-1100463

PATIENT
  Age: 45 Year
  Sex: Male

DRUGS (1)
  1. ACTIVASE [Suspect]
     Indication: ACUTE MYOCARDIAL INFARCTION

REACTIONS (5)
  - HYPOTENSION [None]
  - VENTRICULAR TACHYCARDIA [None]
  - BRADYCARDIA [None]
  - PRESYNCOPE [None]
  - EPIGASTRIC DISCOMFORT [None]
